FAERS Safety Report 6025257-5 (Version None)
Quarter: 2008Q4

REPORT INFORMATION
  Report Type: 
  Country: None (occurrence: None)
  Receive Date: 20081224
  Receipt Date: 20081215
  Transmission Date: 20090506
  Serious: Yes (Other)
  Sender: FDA-Public Use
  Company Number: 1000002962

PATIENT
  Age: 48 Year
  Sex: Male

DRUGS (2)
  1. CARBAMAZEPINE [Suspect]
     Indication: PETIT MAL EPILEPSY
     Dosage: 200 MG (200 MG, 1 IN 1 D), (SINCE AGE 4
  2. PHENOBARBITAL [Concomitant]

REACTIONS (10)
  - BIOPSY LUNG ABNORMAL [None]
  - BLOOD GASES ABNORMAL [None]
  - BRONCHOALVEOLAR LAVAGE ABNORMAL [None]
  - COMPUTERISED TOMOGRAM ABNORMAL [None]
  - COUGH [None]
  - CREPITATIONS [None]
  - HYPOVENTILATION [None]
  - HYPOXIA [None]
  - INTERSTITIAL LUNG DISEASE [None]
  - PULMONARY FUNCTION TEST ABNORMAL [None]
